FAERS Safety Report 23883467 (Version 1)
Quarter: 2024Q2

REPORT INFORMATION
  Report Type: Spontaneous
  Country: US (occurrence: US)
  Receive Date: 20240522
  Receipt Date: 20240522
  Transmission Date: 20240716
  Serious: No
  Sender: FDA-Public Use
  Company Number: US-SA-SAC20240521000296

PATIENT
  Age: 68 Year
  Sex: Female
  Weight: 117.93 kg

DRUGS (1)
  1. DUPIXENT [Suspect]
     Active Substance: DUPILUMAB
     Indication: Asthma
     Dosage: 300 MG, EVERY 2 WEEKS
     Route: 058

REACTIONS (2)
  - Vision blurred [Unknown]
  - Arthralgia [Unknown]
